FAERS Safety Report 15853974 (Version 1)
Quarter: 2019Q1

REPORT INFORMATION
  Report Type: Spontaneous
  Country: US (occurrence: US)
  Receive Date: 20190122
  Receipt Date: 20190122
  Transmission Date: 20190417
  Serious: No
  Sender: FDA-Public Use
  Company Number: US-PFIZER INC-2019023494

PATIENT
  Age: 39 Year
  Sex: Female
  Weight: 97.52 kg

DRUGS (1)
  1. EFFEXOR XR [Suspect]
     Active Substance: VENLAFAXINE HYDROCHLORIDE
     Indication: HYSTERECTOMY
     Dosage: 75 MG, ONCE DAILY
     Route: 048
     Dates: start: 2006, end: 20190106

REACTIONS (2)
  - Withdrawal syndrome [Not Recovered/Not Resolved]
  - Product use in unapproved indication [Unknown]

NARRATIVE: CASE EVENT DATE: 2006
